FAERS Safety Report 9354073 (Version 1)
Quarter: 2013Q2

REPORT INFORMATION
  Report Type: Spontaneous
  Country: DE (occurrence: DE)
  Receive Date: 20130618
  Receipt Date: 20130618
  Transmission Date: 20140414
  Serious: Yes (Other)
  Sender: FDA-Public Use
  Company Number: DE-JNJFOC-20130608044

PATIENT
  Sex: 0

DRUGS (1)
  1. INFLIXIMAB, RECOMBINANT [Suspect]
     Indication: COLITIS ULCERATIVE
     Dosage: 0,2 AND 6 AND EVERY 8 WEEKS THEREAFTER IF TOLERATED
     Route: 042

REACTIONS (5)
  - Drug ineffective [Unknown]
  - Pneumonia herpes viral [Unknown]
  - Drug effect decreased [Unknown]
  - Herpes zoster [Unknown]
  - Adverse drug reaction [Unknown]
